FAERS Safety Report 13781898 (Version 3)
Quarter: 2020Q2

REPORT INFORMATION
  Report Type: Report from Study
  Country: US (occurrence: US)
  Receive Date: 20170724
  Receipt Date: 20200626
  Transmission Date: 20200713
  Serious: Yes (Hospitalization, Other)
  Sender: FDA-Public Use
  Company Number: US-SA-2016SA201153

PATIENT
  Age: 44 Year
  Sex: Female

DRUGS (1)
  1. ALEMTUZUMAB [Suspect]
     Active Substance: ALEMTUZUMAB
     Indication: MULTIPLE SCLEROSIS
     Dosage: 12 MG,QD
     Route: 041
     Dates: start: 20161031, end: 20161104

REACTIONS (27)
  - Gingival recession [Recovering/Resolving]
  - White blood cell count decreased [Not Recovered/Not Resolved]
  - Impaired work ability [Unknown]
  - Vertigo [Unknown]
  - Suture insertion [Unknown]
  - Gingival bleeding [Recovering/Resolving]
  - Unevaluable event [Unknown]
  - Drug monitoring procedure not performed [Unknown]
  - Aphthous ulcer [Unknown]
  - Nausea [Recovered/Resolved]
  - Candida infection [Not Recovered/Not Resolved]
  - Immune system disorder [Unknown]
  - Pneumonia [Unknown]
  - Hospitalisation [Unknown]
  - Malaise [Not Recovered/Not Resolved]
  - Drug ineffective [Unknown]
  - Fall [Unknown]
  - Migraine [Not Recovered/Not Resolved]
  - Malaise [Unknown]
  - Infection [Unknown]
  - Gait inability [Unknown]
  - Multiple sclerosis relapse [Unknown]
  - Oral candidiasis [Not Recovered/Not Resolved]
  - Oral mucosal exfoliation [Recovering/Resolving]
  - Insomnia [Not Recovered/Not Resolved]
  - Mobility decreased [Unknown]
  - Ill-defined disorder [Unknown]

NARRATIVE: CASE EVENT DATE: 2016
